FAERS Safety Report 5419466-3 (Version None)
Quarter: 2007Q3

REPORT INFORMATION
  Report Type: 
  Country: None (occurrence: None)
  Receive Date: 20070820
  Receipt Date: 20070813
  Transmission Date: 20080115
  Serious: Yes (Other)
  Sender: FDA-Public Use
  Company Number: D0054278A

PATIENT
  Age: 10 Year

DRUGS (2)
  1. LAMICTAL [Suspect]
     Route: 048
  2. DIBRO-BE MONO [Suspect]
     Dosage: 850MG UNKNOWN
     Route: 048

REACTIONS (2)
  - CONVULSION [None]
  - DRUG INTERACTION [None]
